FAERS Safety Report 5320762-9 (Version None)
Quarter: 2007Q2

REPORT INFORMATION
  Report Type: 
  Country: None (occurrence: None)
  Receive Date: 20070424
  Receipt Date: 20070329
  Transmission Date: 20071010
  Serious: Yes (Life-Threatening)
  Sender: FDA-Public Use
  Company Number: 200610348BBE

PATIENT
  Age: 37 Year
  Sex: Male
  Weight: 106.5953 kg

DRUGS (13)
  1. GAMUNEX [Suspect]
     Indication: GUILLAIN-BARRE SYNDROME
     Dosage: 400 ML; 1X; IV
     Route: 042
     Dates: start: 20060914, end: 20060915
  2. IGIVNEX - TALECRIS (IMMUNE GLOBULIN IV (HUMAN), CAPRYLATE/CHROMATOGRAP [Suspect]
     Indication: GUILLAIN-BARRE SYNDROME
     Dosage: 800 ML; 1X; IV
     Route: 042
     Dates: start: 20060914, end: 20060915
  3. GAMUNEX [Suspect]
     Indication: GUILLAIN-BARRE SYNDROME
     Dosage: 200 ML; 1X; IV
     Route: 042
     Dates: start: 20060914, end: 20060914
  4. CEFTRIAXONE [Concomitant]
  5. AMPICILLIN [Concomitant]
  6. VANCOMYCIN [Concomitant]
  7. TYLENOL /00509701/ [Concomitant]
  8. GRAVOL TAB [Concomitant]
  9. MAXERAN [Concomitant]
  10. COLACE [Concomitant]
  11. SENOKOT /00571901/ [Concomitant]
  12. CODEINE SUL TAB [Concomitant]
  13. LOVENOX /01708202/ [Concomitant]

REACTIONS (3)
  - MENINGITIS ASEPTIC [None]
  - NEUTROPENIA [None]
  - PYREXIA [None]
